FAERS Safety Report 15331471 (Version 1)
Quarter: 2018Q4

REPORT INFORMATION
  Report Type: Other
  Country: ES (occurrence: ES)
  Receive Date: 20180829
  Receipt Date: 20180829
  Transmission Date: 20190204
  Serious: Yes (Hospitalization, Other)
  Sender: FDA-Public Use
  Company Number: ES-B. BRAUN MEDICAL INC.-2054433

PATIENT
  Sex: Male
  Weight: .92 kg

DRUGS (1)
  1. NUTRILIPID I.V. FAT EMULSION [Suspect]
     Active Substance: SOYBEAN OIL

REACTIONS (7)
  - Apnoea [None]
  - Metabolic acidosis [None]
  - Lethargy [None]
  - Hypertriglyceridaemia [None]
  - Hyperglycaemia [None]
  - Hyponatraemia [None]
  - Haemodynamic instability [None]
